FAERS Safety Report 17051852 (Version 8)
Quarter: 2020Q2

REPORT INFORMATION
  Report Type: Spontaneous
  Country: PT (occurrence: PT)
  Receive Date: 20191120
  Receipt Date: 20200414
  Transmission Date: 20200713
  Serious: Yes (Hospitalization, Other)
  Sender: FDA-Public Use
  Company Number: PT-AUROBINDO-AUR-APL-2019-073754

PATIENT
  Age: 28 Year
  Sex: Female

DRUGS (7)
  1. ARIPIPRAZOLE TABLETS [Suspect]
     Active Substance: ARIPIPRAZOLE
     Dosage: 1 DOSAGE FORM, ONCE A DAY (10MG, AFTER 12 DAYS TITRATED TO 20MG)
     Route: 065
  2. LORAZEPAM. [Suspect]
     Active Substance: LORAZEPAM
     Dosage: 7.5 MILLIGRAM, ONCE A DAY
     Route: 065
  3. COCAINE [Concomitant]
     Active Substance: COCAINE
     Indication: PRODUCT USED FOR UNKNOWN INDICATION
     Dosage: ON AVERAGE ONE LINE INHALED ONCE PER MONTH
     Route: 055
  4. ARIPIPRAZOLE TABLETS [Suspect]
     Active Substance: ARIPIPRAZOLE
     Indication: PSYCHOTIC DISORDER
     Dosage: 10 MILLIGRAM, ONCE A DAY
     Route: 065
  5. ARIPIPRAZOLE TABLETS [Suspect]
     Active Substance: ARIPIPRAZOLE
     Dosage: 20 MILLIGRAM, ONCE A DAY, ON 12TH DAY OF HOSPITALIZATION
     Route: 065
  6. ARIPIPRAZOLE. [Suspect]
     Active Substance: ARIPIPRAZOLE
     Indication: PRODUCT USED FOR UNKNOWN INDICATION
     Dosage: TAPERED
     Route: 065
  7. LORAZEPAM. [Suspect]
     Active Substance: LORAZEPAM
     Indication: PSYCHOTIC DISORDER
     Dosage: 2.5 MILLIGRAM, 3 TIMES A DAY
     Route: 065

REACTIONS (13)
  - Gamma-glutamyltransferase increased [Recovered/Resolved]
  - Off label use [Recovering/Resolving]
  - Drug-induced liver injury [Recovered/Resolved]
  - Jaundice [Recovering/Resolving]
  - Hepatitis [Recovered/Resolved]
  - Alanine aminotransferase increased [Recovered/Resolved]
  - Aspartate aminotransferase increased [Recovered/Resolved]
  - Vomiting [Recovering/Resolving]
  - Product use in unapproved indication [Unknown]
  - Blood bilirubin increased [Recovered/Resolved]
  - Nausea [Recovering/Resolving]
  - Blood alkaline phosphatase increased [Recovered/Resolved]
  - Ocular icterus [Recovered/Resolved]
